FAERS Safety Report 18527417 (Version 1)
Quarter: 2020Q4

REPORT INFORMATION
  Report Type: Spontaneous
  Country: US (occurrence: US)
  Receive Date: 20201119
  Receipt Date: 20201119
  Transmission Date: 20210114
  Serious: Yes (Disabling, Other)
  Sender: FDA-Public Use
  Company Number: None

PATIENT
  Age: 43 Year
  Sex: Female
  Weight: 63 kg

DRUGS (3)
  1. WELLBUTRIN [Concomitant]
     Active Substance: BUPROPION HYDROCHLORIDE
  2. BUPRENORPHINE HCL/NALOXONE [Suspect]
     Active Substance: BUPRENORPHINE HYDROCHLORIDE\NALOXONE
     Indication: DRUG WITHDRAWAL SYNDROME
     Route: 060
     Dates: start: 20180601, end: 20201105
  3. AMATRIPTILINE [Concomitant]

REACTIONS (3)
  - Withdrawal syndrome [None]
  - Suicidal ideation [None]
  - Hair colour changes [None]

NARRATIVE: CASE EVENT DATE: 20201119
